FAERS Safety Report 23578902 (Version 1)
Quarter: 2024Q1

REPORT INFORMATION
  Report Type: Spontaneous
  Country: US (occurrence: None)
  Receive Date: 20240229
  Receipt Date: 20240229
  Transmission Date: 20240410
  Serious: Yes (Other)
  Sender: FDA-Public Use
  Company Number: 2024A044236

PATIENT
  Sex: Female

DRUGS (1)
  1. FASLODEX [Suspect]
     Active Substance: FULVESTRANT
     Dates: start: 202002

REACTIONS (4)
  - Neoplasm [Unknown]
  - PIK3CA-activated mutation [Unknown]
  - Tumour marker increased [Unknown]
  - Drug ineffective [Unknown]
